FAERS Safety Report 20934929 (Version 1)
Quarter: 2022Q2

REPORT INFORMATION
  Report Type: Spontaneous
  Country: US (occurrence: None)
  Receive Date: 20220608
  Receipt Date: 20220608
  Transmission Date: 20220721
  Serious: No
  Sender: FDA-Public Use
  Company Number: US-ROCHE-2900496

PATIENT
  Sex: Female
  Weight: 61.290 kg

DRUGS (15)
  1. ACTEMRA [Suspect]
     Active Substance: TOCILIZUMAB
     Indication: Rheumatoid arthritis
     Route: 065
     Dates: start: 20210812
  2. PREDNISONE [Suspect]
     Active Substance: PREDNISONE
     Indication: Rheumatoid arthritis
     Route: 065
  3. GABAPENTIN [Concomitant]
     Active Substance: GABAPENTIN
     Indication: Migraine
     Dosage: (2) 300 MG TABLET; STARTED ABOUT 3 YEARS AGO
     Route: 048
  4. AMLODIPINE [Concomitant]
     Active Substance: AMLODIPINE BESYLATE
     Indication: Hypertension
     Dosage: STARTED ABOUT 2 YEARS AGO
     Route: 048
  5. METOPROLOL [Concomitant]
     Active Substance: METOPROLOL
     Indication: Hypertension
     Dosage: (0.5) 50 MG TABLET; STARTED ABOUT 2 YEARS AGO
  6. LOVASTATIN [Concomitant]
     Active Substance: LOVASTATIN
     Indication: Blood cholesterol increased
     Dosage: TAKES AT NIGHT: STARTED ABOUT 2 YEARS AGO
     Route: 050
  7. BUTALBITAL COMPOUND [Concomitant]
     Active Substance: ASPIRIN\BUTALBITAL\CAFFEINE
     Indication: Migraine
     Dosage: 50/300 MG; TAKES ONLY WHEN SHE HAS A MIGRAINE
     Route: 048
  8. VITAMIN D3 [Concomitant]
     Active Substance: CHOLECALCIFEROL
     Indication: Osteoporosis
     Dosage: (2) 1000 IU CAPSULES IN THE MORNING; STARTED ABOUT 10 YEARS AGO
     Route: 048
  9. ACIDOPHILUS [Concomitant]
     Active Substance: LACTOBACILLUS ACIDOPHILUS
     Indication: Product used for unknown indication
     Dosage: 1 BILLION ACTIVE CULTURE; TAKES IN THE MORNING; STARTED ABOUT 4 YEARS AGO
     Route: 048
  10. CALCIUM CARBONATE\CHOLECALCIFEROL [Concomitant]
     Active Substance: CALCIUM CARBONATE\CHOLECALCIFEROL
     Indication: Osteoporosis
     Dosage: 600 MG/20 MCG; STARTED ABOUT 10 YEARS AGO
     Route: 048
  11. WOMEN^S ONE DAILY VITAMIN [Concomitant]
     Indication: Product used for unknown indication
     Dosage: STARTED OVER 30 YEARS AGO
     Route: 048
  12. CYMBALTA [Concomitant]
     Active Substance: DULOXETINE HYDROCHLORIDE
     Indication: Insomnia
     Dosage: TAKES IN THE MORNING; STARTED ABOUT 2 YEARS AGO
     Route: 048
  13. FLAXSEED [Concomitant]
     Active Substance: FLAX SEED
     Indication: Product used for unknown indication
     Dosage: STARTED ABOUT 4-5 YEARS AGO
     Route: 048
  14. TRIAMCINOLONE [Concomitant]
     Active Substance: TRIAMCINOLONE
     Indication: Eczema
     Dosage: DOSE IS NOT KNOWN BY THE PATIENT; STARTED SEVERAL YEARS AGO.
     Route: 061
  15. UNSPECIFIED INGREDIENT [Concomitant]
     Active Substance: UNSPECIFIED INGREDIENT
     Indication: Eczema
     Route: 061
     Dates: start: 202105

REACTIONS (2)
  - Exposure via skin contact [Unknown]
  - Tremor [Unknown]
